FAERS Safety Report 18545742 (Version 1)
Quarter: 2020Q4

REPORT INFORMATION
  Report Type: Report from Study
  Country: US (occurrence: US)
  Receive Date: 20201125
  Receipt Date: 20201125
  Transmission Date: 20210114
  Serious: Yes (Hospitalization, Other)
  Sender: FDA-Public Use
  Company Number: US-SHIRE-US201913192

PATIENT
  Sex: Female

DRUGS (12)
  1. TEDUGLUTIDE [Suspect]
     Active Substance: TEDUGLUTIDE
     Dosage: (0.2750) UNKNOWN
     Route: 058
     Dates: start: 20160819
  2. TEDUGLUTIDE [Suspect]
     Active Substance: TEDUGLUTIDE
     Dosage: (0.2750) UNKNOWN
     Route: 058
     Dates: start: 20160819
  3. TEDUGLUTIDE [Suspect]
     Active Substance: TEDUGLUTIDE
     Dosage: 0.2715, UNKNOWN
     Route: 058
     Dates: start: 20160802
  4. TEDUGLUTIDE [Suspect]
     Active Substance: TEDUGLUTIDE
     Indication: MALABSORPTION
     Dosage: 2.8 MILLIGRAM, QD
     Route: 058
     Dates: start: 20161104
  5. TEDUGLUTIDE [Suspect]
     Active Substance: TEDUGLUTIDE
     Indication: MALABSORPTION
     Dosage: 2.8 MILLIGRAM, QD
     Route: 058
     Dates: start: 20161104
  6. TEDUGLUTIDE [Suspect]
     Active Substance: TEDUGLUTIDE
     Dosage: 0.2715, UNKNOWN
     Route: 058
     Dates: start: 20160802
  7. TEDUGLUTIDE [Suspect]
     Active Substance: TEDUGLUTIDE
     Dosage: (0.2750) UNKNOWN
     Route: 058
     Dates: start: 20160819
  8. TEDUGLUTIDE [Suspect]
     Active Substance: TEDUGLUTIDE
     Dosage: (0.2750) UNKNOWN
     Route: 058
     Dates: start: 20160819
  9. TEDUGLUTIDE [Suspect]
     Active Substance: TEDUGLUTIDE
     Dosage: 0.2715, UNKNOWN
     Route: 058
     Dates: start: 20160802
  10. TEDUGLUTIDE [Suspect]
     Active Substance: TEDUGLUTIDE
     Indication: MALABSORPTION
     Dosage: 2.8 MILLIGRAM, QD
     Route: 058
     Dates: start: 20161104
  11. TEDUGLUTIDE [Suspect]
     Active Substance: TEDUGLUTIDE
     Dosage: 0.2715, UNKNOWN
     Route: 058
     Dates: start: 20160802
  12. TEDUGLUTIDE [Suspect]
     Active Substance: TEDUGLUTIDE
     Indication: MALABSORPTION
     Dosage: 2.8 MILLIGRAM, QD
     Route: 058
     Dates: start: 20161104

REACTIONS (3)
  - Pneumonia [Recovering/Resolving]
  - Insurance issue [Not Recovered/Not Resolved]
  - Therapy interrupted [Not Recovered/Not Resolved]
